FAERS Safety Report 18124863 (Version 1)
Quarter: 2020Q3

REPORT INFORMATION
  Report Type: Spontaneous
  Country: US (occurrence: US)
  Receive Date: 20200807
  Receipt Date: 20200807
  Transmission Date: 20201103
  Serious: Yes (Other)
  Sender: FDA-Public Use
  Company Number: US-ACTELION-A-US2020-207857

PATIENT
  Age: 43 Year
  Sex: Female

DRUGS (5)
  1. AMBRISENTAN [Concomitant]
     Active Substance: AMBRISENTAN
  2. ADEMPAS [Concomitant]
     Active Substance: RIOCIGUAT
  3. IBUPROFEN. [Concomitant]
     Active Substance: IBUPROFEN
     Route: 048
  4. UPTRAVI [Suspect]
     Active Substance: SELEXIPAG
     Indication: PULMONARY ARTERIAL HYPERTENSION
     Dosage: 1600 MCG, BID
     Route: 048
     Dates: start: 20180502
  5. IMODIUM A?D [Concomitant]
     Active Substance: LOPERAMIDE HYDROCHLORIDE
     Route: 048

REACTIONS (5)
  - Headache [Unknown]
  - COVID-19 [Unknown]
  - Pain [Unknown]
  - Erythema [Unknown]
  - Diarrhoea [Unknown]

NARRATIVE: CASE EVENT DATE: 20200720
